FAERS Safety Report 9155662 (Version 4)
Quarter: 2013Q2

REPORT INFORMATION
  Report Type: Spontaneous
  Country: US (occurrence: US)
  Receive Date: 20130311
  Receipt Date: 20130412
  Transmission Date: 20140414
  Serious: Yes (Hospitalization)
  Sender: FDA-Public Use
  Company Number: US-BAXTER-2013BAX008483

PATIENT
  Sex: Female

DRUGS (2)
  1. DIANEAL LOW CALCIUM [Suspect]
     Indication: PERITONEAL DIALYSIS
     Route: 033
  2. DIANEAL LOW CALCIUM [Suspect]
     Indication: PERITONEAL DIALYSIS
     Route: 033

REACTIONS (6)
  - Chronic obstructive pulmonary disease [Recovering/Resolving]
  - Cardiac failure congestive [Recovering/Resolving]
  - Renal failure chronic [Recovering/Resolving]
  - Pneumonia [Recovering/Resolving]
  - Infection [Recovering/Resolving]
  - Blood pressure fluctuation [Recovering/Resolving]
